FAERS Safety Report 11166832 (Version 1)
Quarter: 2015Q2

REPORT INFORMATION
  Report Type: Spontaneous
  Country: US (occurrence: None)
  Receive Date: 20150604
  Receipt Date: 20150604
  Transmission Date: 20150821
  Serious: Yes (Death)
  Sender: FDA-Public Use
  Company Number: None

PATIENT
  Age: 77 Year
  Sex: Female
  Weight: 54 kg

DRUGS (24)
  1. IMURAN [Concomitant]
     Active Substance: AZATHIOPRINE
  2. CALCIUM [Concomitant]
     Active Substance: CALCIUM
  3. RESTASIS [Concomitant]
     Active Substance: CYCLOSPORINE
  4. DOXAZOSIN [Concomitant]
     Active Substance: DOXAZOSIN\DOXAZOSIN MESYLATE
  5. LIALDA [Concomitant]
     Active Substance: MESALAMINE
  6. METOPROLOL SUCCINATE ER [Concomitant]
     Active Substance: METOPROLOL SUCCINATE
  7. PREDNISONE. [Concomitant]
     Active Substance: PREDNISONE
  8. PROBIOTIC [Concomitant]
     Active Substance: PROBIOTICS NOS
  9. SIMVASTATIN. [Concomitant]
     Active Substance: SIMVASTATIN
  10. VITAMIN D [Concomitant]
     Active Substance: CHOLECALCIFEROL
  11. ALPHA LIPOIC ACID [Concomitant]
     Active Substance: .ALPHA.-LIPOIC ACID
  12. ASPIRIN. [Concomitant]
     Active Substance: ASPIRIN
  13. KCL [Concomitant]
     Active Substance: POTASSIUM CHLORIDE
  14. SULFAMETHOXAZOLE [Concomitant]
     Active Substance: SULFAMETHOXAZOLE
  15. FUROSEMIDE. [Concomitant]
     Active Substance: FUROSEMIDE
  16. DIGOXIN. [Concomitant]
     Active Substance: DIGOXIN
  17. MULTIVITAMIN [Concomitant]
     Active Substance: VITAMINS
  18. XARELTO [Suspect]
     Active Substance: RIVAROXABAN
     Indication: ATRIAL FIBRILLATION
     Route: 048
     Dates: start: 20141113, end: 20150523
  19. ACITRETIN. [Concomitant]
     Active Substance: ACITRETIN
  20. NEORAL [Concomitant]
     Active Substance: CYCLOSPORINE
  21. TYLENOL [Concomitant]
     Active Substance: ACETAMINOPHEN
  22. LOMOTIL [Concomitant]
     Active Substance: ATROPINE SULFATE\DIPHENOXYLATE HYDROCHLORIDE
  23. SYNTHROID [Concomitant]
     Active Substance: LEVOTHYROXINE SODIUM
  24. ALENDRONATE [Concomitant]
     Active Substance: ALENDRONATE SODIUM

REACTIONS (4)
  - Hypertension [None]
  - Seizure [None]
  - Cerebral haemorrhage [None]
  - Intracranial pressure increased [None]

NARRATIVE: CASE EVENT DATE: 20150524
